FAERS Safety Report 25622722 (Version 1)
Quarter: 2025Q3

REPORT INFORMATION
  Report Type: Report from Study
  Country: CA (occurrence: CA)
  Receive Date: 20250730
  Receipt Date: 20250730
  Transmission Date: 20251020
  Serious: Yes (Hospitalization, Other)
  Sender: ABBVIE
  Company Number: CA-ABBVIE-6368919

PATIENT
  Age: 72 Year
  Sex: Male

DRUGS (2)
  1. VENETOCLAX [Suspect]
     Active Substance: VENETOCLAX
     Indication: Acute myeloid leukaemia
     Dosage: FORM STRENGTH 100 MG, LAST ADMIN DATE: 2025
     Route: 048
     Dates: start: 20250622
  2. GILTERITINIB [Concomitant]
     Active Substance: GILTERITINIB
     Indication: Product used for unknown indication
     Dosage: PER ORAL
     Route: 048
     Dates: start: 20250502

REACTIONS (2)
  - Transplant [Unknown]
  - Infection [Unknown]

NARRATIVE: CASE EVENT DATE: 20250101
